FAERS Safety Report 9652331 (Version 1)
Quarter: 2013Q4

REPORT INFORMATION
  Report Type: Spontaneous
  Country: US (occurrence: None)
  Receive Date: 20131028
  Receipt Date: 20131028
  Transmission Date: 20140711
  Serious: No
  Sender: FDA-Public Use
  Company Number: None

PATIENT
  Age: 31 Year
  Sex: Male
  Weight: 79.38 kg

DRUGS (1)
  1. CIPROFLOXACIN HCL [Suspect]
     Indication: PROSTATE INFECTION
     Dosage: 2 PILLS ONCE DAILY
     Route: 048
     Dates: start: 20130917, end: 20131013

REACTIONS (8)
  - Constipation [None]
  - Dyspepsia [None]
  - Dyspepsia [None]
  - Insomnia [None]
  - Muscle twitching [None]
  - Paraesthesia [None]
  - Burning sensation [None]
  - Erectile dysfunction [None]
